FAERS Safety Report 8973029 (Version 1)
Quarter: 2012Q4

REPORT INFORMATION
  Report Type: 
  Country: CA (occurrence: CA)
  Receive Date: 20121218
  Receipt Date: 20121218
  Transmission Date: 20130627
  Serious: Yes (Death)
  Sender: FDA-Public Use
  Company Number: CA-ABBOTT-12P-028-1022932-00

PATIENT
  Age: 64 Year
  Sex: Male

DRUGS (8)
  1. BIAXIN XL [Suspect]
     Indication: PRODUCT USED FOR UNKNOWN INDICATION
     Dosage: 2.0 dosage forms
  2. BENYLIN DM [Suspect]
     Indication: PRODUCT USED FOR UNKNOWN INDICATION
  3. NYQUIL (PSEUDOEPHEDRINE) [Suspect]
     Indication: PRODUCT USED FOR UNKNOWN INDICATION
  4. PROZAC [Suspect]
     Indication: PRODUCT USED FOR UNKNOWN INDICATION
  5. RESTORIL [Concomitant]
     Indication: PRODUCT USED FOR UNKNOWN INDICATION
  6. SERAX [Concomitant]
     Indication: PRODUCT USED FOR UNKNOWN INDICATION
  7. WELLBUTRIN [Concomitant]
     Indication: PRODUCT USED FOR UNKNOWN INDICATION
  8. ZYPREXA [Concomitant]
     Indication: PRODUCT USED FOR UNKNOWN INDICATION

REACTIONS (3)
  - Cardiac failure [Fatal]
  - Serotonin syndrome [Fatal]
  - Toxicity to various agents [Fatal]
